FAERS Safety Report 15611203 (Version 1)
Quarter: 2018Q4

REPORT INFORMATION
  Report Type: Spontaneous
  Country: DK (occurrence: DK)
  Receive Date: 20181113
  Receipt Date: 20181113
  Transmission Date: 20190205
  Serious: Yes (Death, Life-Threatening, Hospitalization, Other)
  Sender: FDA-Public Use
  Company Number: DK-ACCORD-017219

PATIENT
  Age: 80 Year
  Sex: Female

DRUGS (1)
  1. METHOTREXATE. [Suspect]
     Active Substance: METHOTREXATE
     Indication: RHEUMATOID ARTHRITIS
     Dosage: 2.5 MG, 4X/DAY

REACTIONS (5)
  - Pancytopenia [Fatal]
  - Sepsis [Fatal]
  - Inappropriate schedule of product administration [Fatal]
  - Off label use [Unknown]
  - Diarrhoea haemorrhagic [Unknown]
